FAERS Safety Report 20473130 (Version 15)
Quarter: 2022Q2

REPORT INFORMATION
  Report Type: Spontaneous
  Country: GB (occurrence: GB)
  Receive Date: 20220215
  Receipt Date: 20220629
  Transmission Date: 20220721
  Serious: Yes (Other)
  Sender: FDA-Public Use
  Company Number: None

PATIENT
  Sex: Male

DRUGS (20)
  1. MIRTAZAPINE [Suspect]
     Active Substance: MIRTAZAPINE
     Indication: Product used for unknown indication
     Dosage: 30 MILLIGRAM, DAILY AT NIGHT, FORMULATION REPORTED AS FILM COATED TABLET
     Route: 048
  2. AZATHIOPRINE [Suspect]
     Active Substance: AZATHIOPRINE
     Indication: Colitis
     Dosage: 25 MG, DAILY MORNING, LUNCH AND TEA TIME (WITH OR JUST AFTER FOOD/MEAL)
     Route: 048
  3. AZATHIOPRINE [Suspect]
     Active Substance: AZATHIOPRINE
     Dosage: 75 MILLIGRAM, DAILY,WITH OR JUST AFTER FOOD/ MORNING, LUNCH AND TEA TIME (WITH OR JUST AFTER FOOD/ME
     Route: 048
  4. AZATHIOPRINE [Suspect]
     Active Substance: AZATHIOPRINE
     Dosage: 75 MG, Q8H, MORNING, LUNCH AND TEATIME (WITH OR JUST AFTER FOOD/MEAL)
     Route: 048
  5. AZATHIOPRINE [Suspect]
     Active Substance: AZATHIOPRINE
     Dosage: 25 MG, Q8H (MORNING, LUNCH AND TEATIME (WITH OR JUST AFTER FOOD/MEAL))
     Route: 048
  6. OLANZAPINE [Suspect]
     Active Substance: OLANZAPINE
     Indication: Product used for unknown indication
     Dosage: 5 MILLIGRAM, QD
     Route: 048
  7. OLANZAPINE [Suspect]
     Active Substance: OLANZAPINE
     Dosage: 10 MILLIGRAM,DAILY
     Route: 048
  8. FOLIC ACID [Suspect]
     Active Substance: FOLIC ACID
     Indication: Folate deficiency
     Dosage: 5 MILLIGRAM, DAILY,MORNING
     Route: 048
  9. DIHYDROCODEINE BITARTRATE [Suspect]
     Active Substance: DIHYDROCODEINE BITARTRATE
     Indication: Pain
     Dosage: 2 DOSAGE FORM, Q6H, TWO TO BE TAKEN FOUR TIMES A DAY IF REQUIRED
     Route: 048
  10. DIHYDROCODEINE BITARTRATE [Suspect]
     Active Substance: DIHYDROCODEINE BITARTRATE
     Dosage: 60 MG, Q6H (TWO TO BE TAKEN FOUR TIMES A DAY IFREQUIRED)
     Route: 048
  11. DIHYDROCODEINE BITARTRATE [Suspect]
     Active Substance: DIHYDROCODEINE BITARTRATE
     Dosage: 8 DOSAGE FORM,QD (TWO BE TAKEN FOUR TIMES A DAY IF REQUIRED AS NECESSARY)
     Route: 048
  12. DIHYDROCODEINE BITARTRATE [Suspect]
     Active Substance: DIHYDROCODEINE BITARTRATE
     Dosage: 60 MG. QD,FOUR TIMES DAILY. WITH OR JUST AFTER FOOD OR MEAL
     Route: 048
  13. DIHYDROCODEINE BITARTRATE [Suspect]
     Active Substance: DIHYDROCODEINE BITARTRATE
     Dosage: 60 MILLIGRAM, PRN; AS NECESSARY
     Route: 048
  14. DIHYDROCODEINE BITARTRATE [Suspect]
     Active Substance: DIHYDROCODEINE BITARTRATE
     Dosage: 240 MILLIGRAM, QD,240 MILLIGRAM, Q6H, 240 MG, Q6H, FOUR TIMES DAILY. WITH OR JUST AFTER FOOD/MEAL 60
     Route: 048
  15. FERROUS FUMARATE [Suspect]
     Active Substance: FERROUS FUMARATE
     Indication: Anaemia
     Dosage: 210 MILLIGRAM, BID (MORNING AND NIGHT)
     Route: 048
  16. FERROUS FUMARATE [Suspect]
     Active Substance: FERROUS FUMARATE
     Dosage: 420 MG, BID, MORNING AND NIGHT
     Route: 048
  17. FERROUS FUMARATE [Suspect]
     Active Substance: FERROUS FUMARATE
     Dosage: 840 MG, QD,ONCE A DAY
     Route: 048
  18. PROMETHAZINE HYDROCHLORIDE [Suspect]
     Active Substance: PROMETHAZINE HYDROCHLORIDE
     Indication: Product used for unknown indication
     Dosage: 25 MG, DAILY, AT NIGHT
     Route: 048
  19. ESCITALOPRAM OXALATE [Suspect]
     Active Substance: ESCITALOPRAM OXALATE
     Indication: Product used for unknown indication
     Dosage: 10 MILLIGRAM, DAILY,MORNING
     Route: 048
  20. IRON [Suspect]
     Active Substance: IRON
     Indication: Anaemia
     Dosage: 210 MG, BID
     Route: 048

REACTIONS (2)
  - Seizure [Unknown]
  - Autoscopy [Unknown]
